FAERS Safety Report 22651850 (Version 1)
Quarter: 2023Q2

REPORT INFORMATION
  Report Type: Spontaneous
  Country: US (occurrence: US)
  Receive Date: 20230628
  Receipt Date: 20230628
  Transmission Date: 20230722
  Serious: No
  Sender: FDA-Public Use
  Company Number: US-CTI BIOPHARMA-2023US03671

PATIENT

DRUGS (6)
  1. VONJO [Suspect]
     Active Substance: PACRITINIB
     Indication: Myelofibrosis
     Dosage: 200 MG, BID
     Route: 048
     Dates: start: 20220809
  2. ALLOPURINOL [Concomitant]
     Active Substance: ALLOPURINOL
  3. GABAPENTIN [Concomitant]
     Active Substance: GABAPENTIN
  4. JAKAFI [Concomitant]
     Active Substance: RUXOLITINIB
  5. ASPIRIN [Concomitant]
     Active Substance: ASPIRIN
  6. FLAXSEED [Concomitant]
     Active Substance: FLAX SEED

REACTIONS (1)
  - Red blood cell count decreased [Unknown]
